FAERS Safety Report 7483398-X (Version None)
Quarter: 2011Q2

REPORT INFORMATION
  Report Type: 
  Country: None (occurrence: None)
  Receive Date: 20110517
  Receipt Date: 20110505
  Transmission Date: 20111010
  Serious: Yes (Other)
  Sender: FDA-Public Use
  Company Number: SI-JNJFOC-20110311039

PATIENT

DRUGS (4)
  1. TAVEGIL [Concomitant]
     Route: 065
  2. DOXORUBICIN HCL [Suspect]
     Indication: PRODUCT USED FOR UNKNOWN INDICATION
     Route: 042
     Dates: start: 20110318, end: 20110318
  3. OXYGEN [Concomitant]
     Route: 065
  4. SOLU-MEDROL [Concomitant]
     Route: 065

REACTIONS (5)
  - INFUSION RELATED REACTION [None]
  - OXYGEN SATURATION DECREASED [None]
  - VISUAL IMPAIRMENT [None]
  - PRODUCT QUALITY ISSUE [None]
  - DYSPNOEA [None]
